FAERS Safety Report 23847020 (Version 1)
Quarter: 2024Q2

REPORT INFORMATION
  Report Type: Report from Study
  Country: AU (occurrence: AU)
  Receive Date: 20240513
  Receipt Date: 20240513
  Transmission Date: 20240716
  Serious: Yes (Other)
  Sender: FDA-Public Use
  Company Number: AU-002147023-NVSC2024AU071640

PATIENT
  Sex: Female

DRUGS (2)
  1. LEQVIO [Suspect]
     Active Substance: INCLISIRAN SODIUM
     Indication: Product used for unknown indication
     Dosage: 284 MG, UNKNOWN
     Route: 058
  2. LEQVIO [Suspect]
     Active Substance: INCLISIRAN SODIUM
     Dosage: UNK
     Route: 065

REACTIONS (9)
  - Cardiac failure [Recovering/Resolving]
  - Sepsis [Unknown]
  - Mitral valve incompetence [Unknown]
  - Cholecystitis chronic [Unknown]
  - Acute pulmonary oedema [Unknown]
  - Hypotension [Unknown]
  - Left ventricular dysfunction [Unknown]
  - Coronary artery disease [Unknown]
  - Blood creatinine abnormal [Unknown]
